FAERS Safety Report 25471747 (Version 1)
Quarter: 2025Q2

REPORT INFORMATION
  Report Type: Report from Study
  Country: BE (occurrence: BE)
  Receive Date: 20250624
  Receipt Date: 20250624
  Transmission Date: 20250717
  Serious: Yes (Hospitalization, Other)
  Sender: ROCHE
  Company Number: BE-ROCHE-10000315786

PATIENT

DRUGS (1)
  1. EMICIZUMAB [Suspect]
     Active Substance: EMICIZUMAB
     Indication: Factor VIII deficiency
     Route: 065

REACTIONS (5)
  - Coronary artery stenosis [Unknown]
  - Aortic valve stenosis [Unknown]
  - Acute myocardial infarction [Unknown]
  - Cardiac arrest [Unknown]
  - Pulmonary embolism [Unknown]
